FAERS Safety Report 5638782-3 (Version None)
Quarter: 2008Q1

REPORT INFORMATION
  Report Type: 
  Country: None (occurrence: None)
  Receive Date: 20080226
  Receipt Date: 20080225
  Transmission Date: 20080703
  Serious: Yes (Other)
  Sender: FDA-Public Use
  Company Number: A0711453A

PATIENT
  Age: 29 Year
  Sex: Female

DRUGS (1)
  1. NICODERM CQ [Suspect]
     Indication: SMOKING CESSATION THERAPY
     Dosage: 14MG UNKNOWN
     Route: 062

REACTIONS (9)
  - DIZZINESS [None]
  - EYE ROLLING [None]
  - FEELING OF RELAXATION [None]
  - HEART RATE INCREASED [None]
  - HYPERHIDROSIS [None]
  - MENTAL IMPAIRMENT [None]
  - NAUSEA [None]
  - STOMACH DISCOMFORT [None]
  - SYNCOPE [None]
